FAERS Safety Report 4374829-2 (Version None)
Quarter: 2004Q2

REPORT INFORMATION
  Report Type: 
  Country: None (occurrence: None)
  Receive Date: 20040609
  Receipt Date: 20040414
  Transmission Date: 20050107
  Serious: Yes (Hospitalization, Disabling)
  Sender: FDA-Public Use
  Company Number: US-AMGEN-US073039

PATIENT
  Sex: Female
  Weight: 82.6 kg

DRUGS (8)
  1. ENBREL [Suspect]
     Indication: RHEUMATOID ARTHRITIS
     Route: 058
     Dates: start: 20030330, end: 20031226
  2. PLAQUENIL [Concomitant]
  3. METHOTREXATE [Concomitant]
  4. IBUPROFEN [Concomitant]
  5. TYLENOL [Concomitant]
  6. LEVOXYL [Concomitant]
  7. FOLIC ACID [Concomitant]
  8. LEUCOVORIN CALCIUM [Concomitant]

REACTIONS (6)
  - ASTHENIA [None]
  - DIPLOPIA [None]
  - EYE DISORDER [None]
  - HEADACHE [None]
  - HYPOAESTHESIA [None]
  - VISION BLURRED [None]
